FAERS Safety Report 12318283 (Version 4)
Quarter: 2018Q4

REPORT INFORMATION
  Report Type: Spontaneous
  Country: US (occurrence: US)
  Receive Date: 20160429
  Receipt Date: 20181129
  Transmission Date: 20190204
  Serious: Yes (Hospitalization, Other)
  Sender: FDA-Public Use
  Company Number: US-PFIZER INC-2016232427

PATIENT
  Age: 73 Year
  Sex: Female
  Weight: 90 kg

DRUGS (6)
  1. LYRICA [Suspect]
     Active Substance: PREGABALIN
     Indication: PAIN
     Dosage: 10 MG, 2X/DAY
     Route: 048
  2. LYRICA [Suspect]
     Active Substance: PREGABALIN
     Indication: NEUROPATHY PERIPHERAL
     Dosage: 150 MG, 2X/DAY
     Route: 048
  3. WARFARIN [Concomitant]
     Active Substance: WARFARIN
     Indication: THROMBOSIS
     Dosage: UNK UNK, DAILY
  4. METHOCARBAMOL. [Concomitant]
     Active Substance: METHOCARBAMOL
     Dosage: 500 MG, 4X/DAY
     Route: 048
  5. NORCO [Concomitant]
     Active Substance: ACETAMINOPHEN\HYDROCODONE BITARTRATE
     Indication: PAIN
     Dosage: 1 DF, 4X/DAY
     Route: 048
  6. LYRICA [Suspect]
     Active Substance: PREGABALIN
     Indication: FIBROMYALGIA
     Dosage: 200 MG, 2X/DAY (MORNING AND EVENING)
     Route: 048
     Dates: end: 20180708

REACTIONS (7)
  - Pulmonary hypertension [Not Recovered/Not Resolved]
  - Cardiomegaly [Recovered/Resolved]
  - Rash pruritic [Not Recovered/Not Resolved]
  - Sinusitis [Recovered/Resolved]
  - Anxiety [Recovered/Resolved]
  - Eye disorder [Unknown]
  - Chronic obstructive pulmonary disease [Unknown]

NARRATIVE: CASE EVENT DATE: 201603
